FAERS Safety Report 7671800-X (Version None)
Quarter: 2011Q3

REPORT INFORMATION
  Report Type: 
  Country: None (occurrence: None)
  Receive Date: 20110804
  Receipt Date: 20110727
  Transmission Date: 20111222
  Serious: Yes (Other)
  Sender: FDA-Public Use
  Company Number: NSR_00253_2011

PATIENT
  Sex: Female
  Weight: 58.9676 kg

DRUGS (3)
  1. ZOLOFT [Concomitant]
  2. LAMOTRIGINE [Concomitant]
  3. LAMOTRIGINE [Suspect]
     Indication: DEPRESSION
     Dosage: 100 MG BID ORAL
     Route: 048
     Dates: start: 20110720, end: 20110726

REACTIONS (8)
  - CONFUSIONAL STATE [None]
  - ANXIETY [None]
  - DISTURBANCE IN ATTENTION [None]
  - ADVERSE DRUG REACTION [None]
  - SEDATION [None]
  - FEELING ABNORMAL [None]
  - DEPRESSION [None]
  - DIZZINESS [None]
